FAERS Safety Report 8001820-7 (Version None)
Quarter: 2011Q4

REPORT INFORMATION
  Report Type: 
  Country: None (occurrence: None)
  Receive Date: 20111222
  Receipt Date: 20111220
  Transmission Date: 20120403
  Serious: Yes (Other)
  Sender: FDA-Public Use
  Company Number: US-BAYER-2011-122572

PATIENT
  Sex: Female

DRUGS (1)
  1. AVELOX [Suspect]
     Dosage: 400 MG, ONCE
     Route: 048
     Dates: start: 20111217

REACTIONS (4)
  - ANGIOEDEMA [None]
  - PRURITUS [None]
  - SKIN BURNING SENSATION [None]
  - CHEST DISCOMFORT [None]
